FAERS Safety Report 9240942 (Version 2)
Quarter: 2013Q2

REPORT INFORMATION
  Report Type: Spontaneous
  Country: AR (occurrence: AR)
  Receive Date: 20130418
  Receipt Date: 20130430
  Transmission Date: 20140414
  Serious: Yes (Disabling, Other)
  Sender: FDA-Public Use
  Company Number: AR-AMGEN-ARGSP2013026684

PATIENT
  Age: 67 Year
  Sex: Female

DRUGS (2)
  1. ENBREL [Suspect]
     Indication: RHEUMATOID ARTHRITIS
     Dosage: 50 MG, WEEKLY
     Route: 058
     Dates: start: 20120419, end: 201301
  2. LOTRIAL                            /00574902/ [Concomitant]
     Dosage: UNK

REACTIONS (1)
  - Rheumatoid arthritis [Not Recovered/Not Resolved]
